FAERS Safety Report 8383258-6 (Version None)
Quarter: 2012Q2

REPORT INFORMATION
  Report Type: 
  Country: None (occurrence: None)
  Receive Date: 20120522
  Receipt Date: 20120507
  Transmission Date: 20120825
  Serious: Yes (Other)
  Sender: FDA-Public Use
  Company Number: 2012-00746

PATIENT
  Age: 59 Year
  Sex: Female
  Weight: 95.709 kg

DRUGS (2)
  1. LISINOPRIL AND HYDROCHLOROTHIAZIDE [Suspect]
     Indication: HYPERTENSION
     Dosage: DAILY DOSE 20/25 MG (1 IN 1 D), PER ORAL
     Route: 048
     Dates: start: 20120101, end: 20120204
  2. WELLBUTRIN [Concomitant]

REACTIONS (4)
  - PHARYNGEAL OEDEMA [None]
  - DYSPHONIA [None]
  - COUGH [None]
  - SWOLLEN TONGUE [None]
